FAERS Safety Report 10027136 (Version 1)
Quarter: 2014Q1

REPORT INFORMATION
  Report Type: Spontaneous
  Country: US (occurrence: US)
  Receive Date: 20140321
  Receipt Date: 20140321
  Transmission Date: 20141002
  Serious: No
  Sender: FDA-Public Use
  Company Number: US-MYLANLABS-2013S1018533

PATIENT
  Age: 67 Year
  Sex: Female

DRUGS (1)
  1. ESTRADIOL TRANSDERMAL SYSTEM, USP [Suspect]
     Indication: HORMONE REPLACEMENT THERAPY
     Dosage: CHANGED QW
     Route: 062
     Dates: start: 201107

REACTIONS (1)
  - Drug withdrawal syndrome [Not Recovered/Not Resolved]
